FAERS Safety Report 5105821-8 (Version None)
Quarter: 2006Q3

REPORT INFORMATION
  Report Type: 
  Country: None (occurrence: None)
  Receive Date: 20060912
  Receipt Date: 20060828
  Transmission Date: 20061208
  Serious: Yes (Hospitalization)
  Sender: FDA-Public Use
  Company Number: 2006S1003431

PATIENT
  Age: 39 Year
  Sex: Male

DRUGS (6)
  1. EXTENDED PHENYTOIN SODIUM [Suspect]
     Indication: CONVULSION
     Dosage: SEE IMAGE, ORAL
     Route: 048
     Dates: start: 20060411, end: 20060413
  2. EXTENDED PHENYTOIN SODIUM [Suspect]
     Indication: CONVULSION
     Dosage: SEE IMAGE, ORAL
     Route: 048
     Dates: start: 20060413
  3. EXTENDED PHENYTOIN SODIUM [Suspect]
     Indication: CONVULSION
     Dosage: SEE IMAGE, ORAL
     Route: 048
     Dates: start: 20060414
  4. GOLYTELY [Suspect]
     Dosage: PO
     Route: 048
  5. SETRALINE HCL [Concomitant]
  6. OLANZAPINE [Concomitant]

REACTIONS (6)
  - ANTICONVULSANT DRUG LEVEL DECREASED [None]
  - DIARRHOEA [None]
  - HYPOKALAEMIA [None]
  - MALABSORPTION [None]
  - NAUSEA [None]
  - VOMITING [None]
